FAERS Safety Report 16306267 (Version 7)
Quarter: 2019Q4

REPORT INFORMATION
  Report Type: Report from Study
  Country: DE (occurrence: DE)
  Receive Date: 20190513
  Receipt Date: 20191226
  Transmission Date: 20200122
  Serious: Yes (Hospitalization, Other)
  Sender: FDA-Public Use
  Company Number: DE-MYLANLABS-2019M1044419

PATIENT
  Age: 38 Year
  Sex: Female
  Weight: 118 kg

DRUGS (9)
  1. DIENOGEST,ETHINYLESTRADIOL MYLAN [Suspect]
     Active Substance: DIENOGEST\ETHINYL ESTRADIOL
     Dosage: [DIENOGEST2 MG/ETHINYLESTRADIOL0,03 MG]
     Route: 048
  2. ETHINYLESTRADIOL W/LEVONORGESTREL [Suspect]
     Active Substance: ETHINYL ESTRADIOL\LEVONORGESTREL
     Indication: PRODUCT USED FOR UNKNOWN INDICATION
     Dosage: UNK
  3. DIENOGEST,ETHINYLESTRADIOL MYLAN [Suspect]
     Active Substance: DIENOGEST\ETHINYL ESTRADIOL
     Indication: HORMONAL CONTRACEPTION
     Dosage: DIENOGEST2 MG/ETHINYLESTRADIOL0,03 MG
     Route: 048
     Dates: start: 201811
  4. IBUPROFEN. [Suspect]
     Active Substance: IBUPROFEN
     Indication: PRODUCT USED FOR UNKNOWN INDICATION
     Dosage: UNK
  5. DIENOGEST,ETHINYLESTRADIOL MYLAN [Suspect]
     Active Substance: DIENOGEST\ETHINYL ESTRADIOL
     Indication: ORAL CONTRACEPTION
     Dosage: DIENOGEST2 MG/ETHINYLESTRADIOL0,03 MG
     Route: 048
     Dates: start: 201711, end: 201811
  6. METHOTREXATE. [Suspect]
     Active Substance: METHOTREXATE
     Indication: COLITIS ULCERATIVE
     Dosage: UNK
  7. METOPROLOL. [Concomitant]
     Active Substance: METOPROLOL
     Indication: PRODUCT USED FOR UNKNOWN INDICATION
     Dosage: UNK
  8. PALEXIA [Suspect]
     Active Substance: TAPENTADOL HYDROCHLORIDE
     Indication: PRODUCT USED FOR UNKNOWN INDICATION
     Dosage: UNK
  9. L-THYROXIN                         /00068002/ [Concomitant]
     Active Substance: LEVOTHYROXINE SODIUM
     Indication: PRODUCT USED FOR UNKNOWN INDICATION
     Dosage: UNK
     Route: 065

REACTIONS (10)
  - Musculoskeletal stiffness [Unknown]
  - Lymphoedema [Unknown]
  - Embolism venous [Unknown]
  - Condition aggravated [Unknown]
  - Peripheral swelling [Unknown]
  - Muscular weakness [Unknown]
  - Fibromyalgia [Unknown]
  - Deep vein thrombosis [Recovered/Resolved]
  - Still^s disease [Unknown]
  - Coagulopathy [Unknown]

NARRATIVE: CASE EVENT DATE: 201808
